FAERS Safety Report 5728837-7 (Version None)
Quarter: 2008Q2

REPORT INFORMATION
  Report Type: 
  Country: None (occurrence: None)
  Receive Date: 20080506
  Receipt Date: 20080424
  Transmission Date: 20081010
  Serious: Yes (Hospitalization)
  Sender: FDA-Public Use
  Company Number: GB-ELI_LILLY_AND_COMPANY-GB200804006673

PATIENT
  Age: 61 Year
  Sex: Male
  Weight: 58.6 kg

DRUGS (4)
  1. FORTEO [Suspect]
     Indication: OSTEOPOROSIS
     Dosage: 20 UG, UNKNOWN
     Route: 058
     Dates: start: 20080201
  2. COMBIVENT [Concomitant]
     Indication: BRONCHIECTASIS
     Dosage: UNK, UNKNOWN
     Route: 055
  3. PREDNISOLONE [Concomitant]
     Indication: BRONCHIECTASIS
     Dosage: UNK, AS NEEDED
     Route: 048
  4. SERETIDE [Concomitant]
     Indication: BRONCHIECTASIS
     Dosage: UNK, UNKNOWN
     Route: 055

REACTIONS (2)
  - CONDITION AGGRAVATED [None]
  - DYSPNOEA [None]
